FAERS Safety Report 23215216 (Version 1)
Quarter: 2023Q4

REPORT INFORMATION
  Report Type: Report from Study
  Country: US (occurrence: US)
  Receive Date: 20231122
  Receipt Date: 20231122
  Transmission Date: 20240110
  Serious: Yes (Death)
  Sender: FDA-Public Use
  Company Number: US-ABBVIE-5506534

PATIENT
  Sex: Male

DRUGS (7)
  1. VENCLEXTA [Suspect]
     Active Substance: VENETOCLAX
     Indication: Myelodysplastic syndrome
     Dosage: FORM STRENGTH 10 MILLIGRAM?TAKE 20MG(2X10MG TABS) BY MOUTH EVERY DAY ON WEEK 1.
     Route: 048
  2. VENCLEXTA [Suspect]
     Active Substance: VENETOCLAX
     Indication: Myelodysplastic syndrome
     Dosage: FORM STRENGTH - 50 MILLIGRAM?THEN, 50MG(1X50MG TAB) DAILY BY MOUTH WEEK 2
     Route: 048
  3. VENCLEXTA [Suspect]
     Active Substance: VENETOCLAX
     Indication: Myelodysplastic syndrome
     Dosage: THEN, 100MG(1X100MG TAB) BY MOUTH DAILY WEEK 3.?FORM STRENGTH- 100 MILLIGRAM
     Route: 048
  4. VENCLEXTA [Suspect]
     Active Substance: VENETOCLAX
     Indication: Myelodysplastic syndrome
     Dosage: THEN, 200MG(2X100MG TABS) DAILY WEEK 4?FORM STRENGTH-100 MILLIGRAM
     Route: 048
  5. PROCRIT [Concomitant]
     Active Substance: ERYTHROPOIETIN
     Indication: Product used for unknown indication
     Dosage: 40000 UNITS
  6. INQOVI [Concomitant]
     Active Substance: CEDAZURIDINE\DECITABINE
     Indication: Product used for unknown indication
  7. ONDANSETRON [Concomitant]
     Active Substance: ONDANSETRON
     Indication: Product used for unknown indication

REACTIONS (2)
  - Death [Fatal]
  - Off label use [Unknown]
